FAERS Safety Report 5860675-7 (Version None)
Quarter: 2008Q3

REPORT INFORMATION
  Report Type: 
  Country: None (occurrence: None)
  Receive Date: 20080827
  Receipt Date: 20071012
  Transmission Date: 20090109
  Serious: No
  Sender: FDA-Public Use
  Company Number: US-ABBOTT-07P-163-0420631-00

PATIENT
  Sex: Male
  Weight: 109 kg

DRUGS (4)
  1. NIASPAN [Suspect]
     Indication: ISCHAEMIC HEART DISEASE PROPHYLAXIS
     Dosage: ORANGE  QHS
     Route: 048
     Dates: start: 20071009
  2. JANUVIA [Concomitant]
     Indication: DRUG USE FOR UNKNOWN INDICATION
  3. METFORMIN HCL [Concomitant]
     Indication: DIABETES MELLITUS
  4. CADUET [Concomitant]
     Indication: DRUG USE FOR UNKNOWN INDICATION

REACTIONS (6)
  - ABASIA [None]
  - ASTHENIA [None]
  - GAIT DISTURBANCE [None]
  - INSOMNIA [None]
  - MYALGIA [None]
  - PARAESTHESIA [None]
